FAERS Safety Report 5190812-1 (Version None)
Quarter: 2006Q4

REPORT INFORMATION
  Report Type: 
  Country: None (occurrence: None)
  Receive Date: 20061222
  Receipt Date: 20061030
  Transmission Date: 20070319
  Serious: Yes (Other)
  Sender: FDA-Public Use
  Company Number: US-ROCHE-470125

PATIENT
  Age: 14 Year
  Sex: Male
  Weight: 89.4 kg

DRUGS (1)
  1. ACCUTANE [Suspect]
     Route: 048
     Dates: start: 20061003, end: 20061027

REACTIONS (3)
  - DEPRESSION [None]
  - FAMILY STRESS [None]
  - SUICIDAL IDEATION [None]
